FAERS Safety Report 7626436-3 (Version None)
Quarter: 2011Q3

REPORT INFORMATION
  Report Type: 
  Country: None (occurrence: None)
  Receive Date: 20110721
  Receipt Date: 20110718
  Transmission Date: 20111222
  Serious: Yes (Life-Threatening, Hospitalization, Other)
  Sender: FDA-Public Use
  Company Number: DE-SANOFI-AVENTIS-2011SA045419

PATIENT
  Age: 78 Year
  Sex: Male
  Weight: 111 kg

DRUGS (5)
  1. HYDROCHLOROTHIAZIDE [Suspect]
     Dosage: 1X1 TABLET AT 25 MG DAILY PER OS
     Route: 048
     Dates: start: 20110202, end: 20110208
  2. RAMIPRIL [Suspect]
     Dosage: 1X1 TABLET AT 10 MG DAILY PER OS
     Route: 048
     Dates: start: 20101101, end: 20110201
  3. FUROSEMIDE [Suspect]
     Dosage: 40-240 MG DAILY I.V.
     Route: 042
     Dates: start: 20110202, end: 20110206
  4. PLAVIX [Suspect]
     Dosage: 1X1 FILM-COATED TABLET AT 75 MG DAILY PER OS
     Route: 048
     Dates: start: 20110202, end: 20110209
  5. ALISKIREN [Suspect]
     Dosage: 1-2X1 FILM-COATED TABLET AT 300 MG DAILY PER OS
     Route: 048
     Dates: start: 20110202, end: 20110206

REACTIONS (2)
  - RENAL FAILURE ACUTE [None]
  - BLOOD CREATININE INCREASED [None]
